FAERS Safety Report 22284501 (Version 1)
Quarter: 2023Q2

REPORT INFORMATION
  Report Type: Spontaneous
  Country: GB (occurrence: GB)
  Receive Date: 20230504
  Receipt Date: 20230504
  Transmission Date: 20230722
  Serious: Yes (Death, Life-Threatening, Hospitalization, Other)
  Sender: FDA-Public Use
  Company Number: None

PATIENT
  Age: 100 Year
  Sex: Female

DRUGS (16)
  1. TIGECYCLINE [Suspect]
     Active Substance: TIGECYCLINE
     Indication: Colonic abscess
     Dosage: UNK
     Dates: start: 20220909, end: 20220926
  2. AMITRIPTYLINE [Concomitant]
     Active Substance: AMITRIPTYLINE
     Dosage: 10 MG, 1X/DAY NIGHT
  3. ASPIRIN [Concomitant]
     Active Substance: ASPIRIN
     Dosage: 75 MG, 1X/DAY
  4. ATENOLOL [Concomitant]
     Active Substance: ATENOLOL
     Dosage: 100 MG, 1X/DAY
  5. COCODAMOL [Concomitant]
     Active Substance: ACETAMINOPHEN\CODEINE PHOSPHATE
     Dosage: 30MG/500MG. 1-2 QDS PRN
  6. DOCUSATE [Concomitant]
     Active Substance: DOCUSATE
     Dosage: 200 MG, 1X/DAY MORNING
  7. ENALAPRIL [Concomitant]
     Active Substance: ENALAPRIL
     Dosage: 20 MG, 1X/DAY
  8. CHOLECALCIFEROL [Concomitant]
     Active Substance: CHOLECALCIFEROL
     Dosage: 20000 IU, MONTHLY
  9. ISOSORBIDE MONONITRATE [Concomitant]
     Active Substance: ISOSORBIDE MONONITRATE
     Dosage: 60 MG, 2X/DAY MODIFIED-RELEASE CAPSULES
  10. NICORANDIL [Concomitant]
     Active Substance: NICORANDIL
     Dosage: 10 MG, 2X/DAY
  11. OMEPRAZOLE [Concomitant]
     Active Substance: OMEPRAZOLE
     Dosage: 20 MG, 1X/DAY
  12. PREGABALIN [Concomitant]
     Active Substance: PREGABALIN
     Dosage: 100 MG, 3X/DAY
  13. VENTOLIN [Concomitant]
     Active Substance: ALBUTEROL SULFATE
     Dosage: 200MICROGRAMS/DOSE. 1 PUFF QDS
  14. SIMVASTATIN [Concomitant]
     Active Substance: SIMVASTATIN
     Dosage: 20 MG, 1X/DAY NIGHT
  15. SERETIDE [Concomitant]
     Active Substance: FLUTICASONE PROPIONATE\SALMETEROL XINAFOATE
     Dosage: 2 PUFFS. FLUTICASONE PROPIONATE 100MICROGRAMS/DOSE / SALMETEROL 50MICROGRAMS/DOSE.
  16. ISPAGHULA EXTRACT\PSYLLIUM [Concomitant]
     Active Substance: HERBALS\PLANTAGO OVATA SEED\PLANTAGO SEED
     Dosage: 1 DF, 1X/DAY ISPAGHULA HUSK 3.5G EFFERVESCENT GRANULES SACHETS GLUTEN FREE SUGAR FREE ORANGE

REACTIONS (6)
  - Multiple organ dysfunction syndrome [Fatal]
  - Hepatotoxicity [Not Recovered/Not Resolved]
  - Cholestatic liver injury [Not Recovered/Not Resolved]
  - Jaundice [Not Recovered/Not Resolved]
  - Gamma-glutamyltransferase increased [Not Recovered/Not Resolved]
  - Blood alkaline phosphatase increased [Not Recovered/Not Resolved]

NARRATIVE: CASE EVENT DATE: 20220101
